FAERS Safety Report 8515560-9 (Version None)
Quarter: 2012Q3

REPORT INFORMATION
  Report Type: 
  Country: None (occurrence: None)
  Receive Date: 20120717
  Receipt Date: 20120710
  Transmission Date: 20120928
  Serious: Yes (Other)
  Sender: FDA-Public Use
  Company Number: PHHY2012CA050895

PATIENT
  Sex: Female

DRUGS (1)
  1. SANDOSTATIN LAR [Suspect]
     Indication: NEUROENDOCRINE CARCINOMA METASTATIC
     Dosage: 30 MG, QMO
     Route: 030
     Dates: start: 20120404

REACTIONS (13)
  - NAUSEA [None]
  - VISION BLURRED [None]
  - SPEECH DISORDER [None]
  - HEADACHE [None]
  - FATIGUE [None]
  - COUGH [None]
  - INFLUENZA LIKE ILLNESS [None]
  - ARTHRALGIA [None]
  - SPINAL COLUMN STENOSIS [None]
  - INJECTION SITE MASS [None]
  - EYE IRRITATION [None]
  - MUSCULAR WEAKNESS [None]
  - DIZZINESS [None]
